FAERS Safety Report 21343722 (Version 1)
Quarter: 2022Q3

REPORT INFORMATION
  Report Type: Report from Study
  Country: US (occurrence: US)
  Receive Date: 20220916
  Receipt Date: 20220916
  Transmission Date: 20221026
  Serious: Yes (Other)
  Sender: FDA-Public Use
  Company Number: US-BRISTOL-MYERS SQUIBB COMPANY-2022-105287

PATIENT
  Age: 55 Year
  Sex: Male
  Weight: 113.3 kg

DRUGS (1)
  1. REVLIMID [Suspect]
     Active Substance: LENALIDOMIDE
     Indication: Plasma cell myeloma
     Dosage: FREQUENCY: TAKE 1 CAPSULE DAILY FOR 21 DAYS AND THEN SKIP FOR 7 DAYS
     Route: 065

REACTIONS (2)
  - Nephritis [Unknown]
  - Cholelithiasis [Unknown]
